FAERS Safety Report 23828170 (Version 1)
Quarter: 2024Q2

REPORT INFORMATION
  Report Type: Spontaneous
  Country: US (occurrence: US)
  Receive Date: 20240508
  Receipt Date: 20240508
  Transmission Date: 20240716
  Serious: Yes (Hospitalization)
  Sender: FDA-Public Use
  Company Number: US-DRL-USA-LIT/USA/24/0006500

PATIENT
  Sex: Female

DRUGS (3)
  1. IBUPROFEN [Suspect]
     Active Substance: IBUPROFEN
     Indication: Product use in unapproved indication
     Route: 064
  2. VITAMINS [Suspect]
     Active Substance: VITAMINS
     Indication: Product use in unapproved indication
     Route: 064
  3. ACETAMINOPHEN [Suspect]
     Active Substance: ACETAMINOPHEN
     Indication: Product use in unapproved indication
     Route: 064

REACTIONS (15)
  - Hypoxic ischaemic encephalopathy neonatal [Unknown]
  - Foetal exposure during pregnancy [Unknown]
  - Premature baby [Unknown]
  - COVID-19 pneumonia [Unknown]
  - Neonatal respiratory distress syndrome [Unknown]
  - Newborn persistent pulmonary hypertension [Unknown]
  - Acute right ventricular failure [Unknown]
  - Liver disorder [Unknown]
  - Acute kidney injury [Unknown]
  - Hypoglycaemia [Unknown]
  - Coagulopathy [Unknown]
  - Thrombocytopenia [Unknown]
  - Seizure [Unknown]
  - Intraventricular haemorrhage [Unknown]
  - Respiratory failure [Unknown]
